FAERS Safety Report 4879218-X (Version None)
Quarter: 2005Q4

REPORT INFORMATION
  Report Type: 
  Country: None (occurrence: None)
  Receive Date: 20051209
  Receipt Date: 20050916
  Transmission Date: 20060501
  Serious: Yes (Death)
  Sender: FDA-Public Use
  Company Number: USA-2005-0021283

PATIENT
  Age: 40 Year
  Sex: Male
  Weight: 81.6 kg

DRUGS (6)
  1. OXYCONTIN [Suspect]
  2. NIACIN [Suspect]
  3. NICOTINE [Suspect]
  4. CAFFEINE (CAFFEINE) [Suspect]
  5. CITALOPRAM (CITALOPRAM) [Suspect]
  6. DIAZEPAM [Suspect]

REACTIONS (1)
  - OVERDOSE [None]
